FAERS Safety Report 4958934-5 (Version None)
Quarter: 2006Q1

REPORT INFORMATION
  Report Type: 
  Country: None (occurrence: None)
  Receive Date: 20060324
  Receipt Date: 20060314
  Transmission Date: 20060701
  Serious: Yes (Death)
  Sender: FDA-Public Use
  Company Number: HQWYE319514MAR06

PATIENT
  Age: 25 Year
  Sex: Male

DRUGS (8)
  1. PANTOLOC (PANTOPRAZOLE, UNSPEC) [Suspect]
     Dosage: 40 MG
  2. FOSAMAX [Suspect]
     Indication: OSTEOPOROSIS
     Dosage: 10 MG 1X PER 1 DAY, ORAL
     Route: 048
  3. PREDNISONE TAB [Suspect]
     Indication: SYSTEMIC LUPUS ERYTHEMATOSUS
     Dosage: 60 MG 1X PER 1 DAY
  4. ALTACE [Concomitant]
  5. VIOXX [Concomitant]
  6. SINGULAIR [Concomitant]
  7. CRIXIVAN [Concomitant]
  8. COZAAR [Concomitant]

REACTIONS (6)
  - ANTIPHOSPHOLIPID SYNDROME [None]
  - ARRHYTHMIA [None]
  - CARDIOVASCULAR DISORDER [None]
  - EROSIVE OESOPHAGITIS [None]
  - MYOCARDIAL INFARCTION [None]
  - SUDDEN DEATH [None]
